FAERS Safety Report 4844014-6 (Version None)
Quarter: 2005Q4

REPORT INFORMATION
  Report Type: 
  Country: None (occurrence: None)
  Receive Date: 20051202
  Receipt Date: 20051123
  Transmission Date: 20060501
  Serious: Yes (Other)
  Sender: FDA-Public Use
  Company Number: US-MERCK-0511USA04259

PATIENT
  Age: 55 Year
  Sex: Female
  Weight: 66 kg

DRUGS (19)
  1. VIOXX [Suspect]
     Indication: PAIN
     Route: 048
     Dates: start: 20020627, end: 20040105
  2. MORPHINE [Concomitant]
     Route: 065
  3. MSIR [Concomitant]
     Route: 065
  4. CARBIDOPA AND LEVODOPA [Concomitant]
     Route: 065
  5. SPIRONOLACTONE [Concomitant]
     Route: 065
  6. PLAVIX [Concomitant]
     Route: 065
  7. PREMARIN [Concomitant]
     Route: 065
  8. SYNTHROID [Concomitant]
     Route: 065
  9. SYNTHROID [Concomitant]
     Route: 065
  10. PROMETHAZINE [Concomitant]
     Route: 065
  11. [THERAPY UNSPECIFIED] [Concomitant]
     Route: 065
  12. HYDROXYZINE PAMOATE [Concomitant]
     Route: 065
  13. ACETAMINOPHEN AND PROPOXYPHENE NAPSYLATE [Concomitant]
     Route: 065
  14. CLINDAMYCIN [Concomitant]
     Route: 065
  15. CARBAMAZEPINE [Concomitant]
     Route: 065
  16. TRAZON [Concomitant]
     Route: 065
  17. IMITREX [Concomitant]
     Route: 065
  18. DICYCLOMINE HYDROCHLORIDE [Concomitant]
     Route: 065
  19. TOPAMAX [Concomitant]
     Route: 065

REACTIONS (7)
  - ANGINA PECTORIS [None]
  - CEREBROVASCULAR ACCIDENT [None]
  - CHEST PAIN [None]
  - CONDITION AGGRAVATED [None]
  - MYOCARDIAL INFARCTION [None]
  - PARKINSON'S DISEASE [None]
  - PNEUMONIA [None]
